FAERS Safety Report 13923442 (Version 4)
Quarter: 2018Q3

REPORT INFORMATION
  Report Type: Spontaneous
  Country: IT (occurrence: IT)
  Receive Date: 20170831
  Receipt Date: 20180821
  Transmission Date: 20181010
  Serious: Yes (Other)
  Sender: FDA-Public Use
  Company Number: IT-SUN PHARMACEUTICAL INDUSTRIES LTD-2017RR-148778

PATIENT
  Age: 38 Year
  Sex: Female

DRUGS (5)
  1. LETROZOLE. [Suspect]
     Active Substance: LETROZOLE
     Indication: CONTROLLED OVARIAN STIMULATION
     Route: 065
  2. DECAPEPTYL [Concomitant]
     Active Substance: TRIPTORELIN
     Indication: PRODUCT USED FOR UNKNOWN INDICATION
     Dosage: 0.2 MG
     Route: 040
  3. LETROZOLE. [Suspect]
     Active Substance: LETROZOLE
     Indication: INTRADUCTAL PROLIFERATIVE BREAST LESION
  4. RECOMBINANT HUMAN FOLLICLE STIMULATING HORMONE [Concomitant]
     Indication: INTRADUCTAL PROLIFERATIVE BREAST LESION
     Dosage: 187.5 IU, DAILY
     Route: 065
  5. RECOMBINANT HUMAN FOLLICLE STIMULATING HORMONE [Concomitant]
     Dosage: 150 IU, DAILY
     Route: 065

REACTIONS (1)
  - Progesterone increased [Unknown]
